FAERS Safety Report 11351305 (Version 1)
Quarter: 2015Q3

REPORT INFORMATION
  Report Type: Spontaneous
  Country: US (occurrence: None)
  Receive Date: 20150806
  Receipt Date: 20150806
  Transmission Date: 20151125
  Serious: Yes (Other)
  Sender: FDA-Public Use
  Company Number: None

PATIENT
  Age: 42 Year
  Sex: Male
  Weight: 76.66 kg

DRUGS (6)
  1. EXCEDRIN MIGRAINE [Concomitant]
     Active Substance: ACETAMINOPHEN\ASPIRIN\CAFFEINE
  2. OXYCARBAZAPINE [Concomitant]
  3. CLONAZEPAM. [Concomitant]
     Active Substance: CLONAZEPAM
  4. ACETAMINOPHEN. [Concomitant]
     Active Substance: ACETAMINOPHEN
  5. LEVETIRACETAM ER [Suspect]
     Active Substance: LEVETIRACETAM
     Indication: EPILEPSY
     Dosage: TAKE 3 TABS AM AND 4 TABS PM
     Route: 048
  6. ZONISAMIDE. [Concomitant]
     Active Substance: ZONISAMIDE

REACTIONS (2)
  - Seizure [None]
  - Medication residue present [None]

NARRATIVE: CASE EVENT DATE: 20150805
